FAERS Safety Report 8966474 (Version 1)
Quarter: 2012Q4

REPORT INFORMATION
  Report Type: 
  Country: US (occurrence: US)
  Receive Date: 20121217
  Receipt Date: 20121217
  Transmission Date: 20130627
  Serious: No
  Sender: FDA-Public Use
  Company Number: US-BAYER-2012-131347

PATIENT
  Age: 25 Year
  Sex: Female

DRUGS (1)
  1. MIRENA [Suspect]
     Indication: CONTRACEPTION
     Dosage: 20 mcg/24hr, CONT
     Route: 015
     Dates: start: 200910

REACTIONS (7)
  - Malaise [None]
  - Pallor [None]
  - Pregnancy with contraceptive device [None]
  - Nausea [None]
  - Vomiting [None]
  - Menstruation delayed [None]
  - Drug ineffective [None]
